FAERS Safety Report 7406714-3 (Version None)
Quarter: 2011Q2

REPORT INFORMATION
  Report Type: 
  Country: None (occurrence: None)
  Receive Date: 20110406
  Receipt Date: 20110406
  Transmission Date: 20111010
  Serious: Yes (Hospitalization)
  Sender: FDA-Public Use
  Company Number: None

PATIENT
  Sex: Female
  Weight: 83.9 kg

DRUGS (12)
  1. CRESTOR [Concomitant]
  2. ASPIRIN [Concomitant]
  3. KEPPRA [Concomitant]
  4. LORAZEPAM [Concomitant]
  5. AMLODIPINE [Concomitant]
  6. APREPITANT [Concomitant]
  7. DEXAMETHASONE [Concomitant]
  8. PROCHLORPERAZINE TAB [Concomitant]
  9. CISPLATIN [Suspect]
     Dosage: 100 MG
     Dates: end: 20110223
  10. TAXOL [Suspect]
     Dosage: 220 MG
     Dates: end: 20110222
  11. PYRIDOXINE [Concomitant]
  12. ONDANSETRON [Concomitant]

REACTIONS (1)
  - CONVULSION [None]
